FAERS Safety Report 19828723 (Version 2)
Quarter: 2021Q3

REPORT INFORMATION
  Report Type: Spontaneous
  Country: FR (occurrence: FR)
  Receive Date: 20210914
  Receipt Date: 20210920
  Transmission Date: 20211014
  Serious: Yes (Hospitalization)
  Sender: FDA-Public Use
  Company Number: FR-MYLANLABS-2021M1061582

PATIENT
  Age: 61 Year
  Sex: Male
  Weight: 87.5 kg

DRUGS (7)
  1. SPECIAFOLDINE [Suspect]
     Active Substance: FOLIC ACID
     Indication: PROPHYLAXIS
     Dosage: 3 DOSAGE FORM, QW (2 JOURS AVANT PRISE DE L^IMETH)
     Route: 048
     Dates: start: 202011, end: 20210331
  2. UVEDOSE [Suspect]
     Active Substance: CHOLECALCIFEROL
     Indication: VITAMIN D DEFICIENCY
     Dosage: 1 DOSAGE FORM, MONTHLY
     Route: 048
     Dates: end: 20210331
  3. LAMALINE                           /00764901/ [Suspect]
     Active Substance: ACETAMINOPHEN\BELLADONNA LEAF\CAFFEINE\OPIUM
     Indication: PAIN
     Dosage: 6 DOSAGE FORM, QD
     Route: 048
     Dates: end: 20210331
  4. IMETH                              /00113802/ [Suspect]
     Active Substance: METHOTREXATE SODIUM
     Indication: RHEUMATOID ARTHRITIS
     Dosage: 1 DOSAGE FORM, QW
     Route: 058
     Dates: start: 20201125, end: 20210331
  5. NAPROXENE                          /00256201/ [Suspect]
     Active Substance: NAPROXEN
     Indication: RHEUMATOID ARTHRITIS
     Dosage: 1100 MILLIGRAM, QD
     Route: 048
     Dates: end: 20210331
  6. ATENOLOL. [Concomitant]
     Active Substance: ATENOLOL
     Indication: HYPERTENSION
     Dosage: 50 MILLIGRAM, QD
     Route: 048
  7. ESOMEPRAZOLE. [Suspect]
     Active Substance: ESOMEPRAZOLE MAGNESIUM
     Indication: PROPHYLAXIS AGAINST GASTROINTESTINAL ULCER
     Dosage: 40 MILLIGRAM, QD
     Route: 048
     Dates: end: 20210331

REACTIONS (3)
  - Dyspnoea [Recovered/Resolved]
  - Cough [Recovered/Resolved]
  - Interstitial lung disease [Recovered/Resolved]

NARRATIVE: CASE EVENT DATE: 202103
